FAERS Safety Report 4384174-7 (Version None)
Quarter: 2004Q2

REPORT INFORMATION
  Report Type: 
  Country: None (occurrence: None)
  Receive Date: 20040623
  Receipt Date: 20040623
  Transmission Date: 20050107
  Serious: Yes (Hospitalization)
  Sender: FDA-Public Use
  Company Number: None

PATIENT
  Age: 69 Year
  Sex: Female
  Weight: 50.4 kg

DRUGS (1)
  1. FERRLECIT 150 MG/10 ML NS WATSON PHARMACEUTICALS [Suspect]
     Indication: ANAEMIA
     Dosage: 250 MG Q WEEK IV
     Route: 042
     Dates: start: 20040301, end: 20040308

REACTIONS (4)
  - BURNING SENSATION [None]
  - DYSPNOEA [None]
  - HYPOTENSION [None]
  - TREMOR [None]
